FAERS Safety Report 15615302 (Version 1)
Quarter: 2018Q4

REPORT INFORMATION
  Report Type: Report from Study
  Country: None (occurrence: US)
  Receive Date: 20181114
  Receipt Date: 20181114
  Transmission Date: 20190205
  Serious: Yes (Hospitalization)
  Sender: FDA-Public Use
  Company Number: US-ABBVIE-18K-163-2485452-00

PATIENT
  Age: 67 Year
  Sex: Female
  Weight: 108.96 kg

DRUGS (1)
  1. HUMIRA [Suspect]
     Active Substance: ADALIMUMAB
     Indication: RHEUMATOID ARTHRITIS
     Route: 058

REACTIONS (4)
  - Pneumonia [Recovered/Resolved]
  - Disorientation [Recovering/Resolving]
  - Urinary tract infection [Recovering/Resolving]
  - Hiatus hernia [Unknown]
